FAERS Safety Report 8889938 (Version 1)
Quarter: 2012Q4

REPORT INFORMATION
  Report Type: 
  Country: US (occurrence: US)
  Receive Date: 20121107
  Receipt Date: 20121107
  Transmission Date: 20130627
  Serious: Yes (Hospitalization)
  Sender: FDA-Public Use
  Company Number: US-PFIZER INC-2012273895

PATIENT
  Sex: Male

DRUGS (1)
  1. DEPO-TESTOSTERONE [Suspect]
     Indication: HYPOGONADISM
     Dosage: UNK
     Dates: start: 2012

REACTIONS (6)
  - Cardiac disorder [Unknown]
  - Chest pain [Unknown]
  - Product deposit [Unknown]
  - Injection site bruising [Unknown]
  - Injection site haemorrhage [Unknown]
  - Feeling abnormal [Unknown]
